FAERS Safety Report 8541986-3 (Version None)
Quarter: 2012Q3

REPORT INFORMATION
  Report Type: 
  Country: None (occurrence: None)
  Receive Date: 20120726
  Receipt Date: 20111003
  Transmission Date: 20120928
  Serious: No
  Sender: FDA-Public Use
  Company Number: US-ASTRAZENECA-2011SE58205

PATIENT
  Age: 57 Year
  Sex: Male
  Weight: 74.8 kg

DRUGS (2)
  1. PREDNISONE [Concomitant]
     Dosage: FREQUENCY AS REQUIRED
  2. SEROQUEL XR [Suspect]
     Indication: SLEEP DISORDER
     Route: 048
     Dates: start: 20110901

REACTIONS (5)
  - OFF LABEL USE [None]
  - INSOMNIA [None]
  - DRUG DOSE OMISSION [None]
  - WRONG DRUG ADMINISTERED [None]
  - ASTHMA [None]
